FAERS Safety Report 21748150 (Version 6)
Quarter: 2025Q2

REPORT INFORMATION
  Report Type: Spontaneous
  Country: US (occurrence: US)
  Receive Date: 20221219
  Receipt Date: 20250519
  Transmission Date: 20250717
  Serious: Yes (Other)
  Sender: PFIZER
  Company Number: US-PFIZER INC-202201372046

PATIENT
  Age: 72 Year
  Sex: Male
  Weight: 95.238 kg

DRUGS (6)
  1. VYNDAMAX [Suspect]
     Active Substance: TAFAMIDIS
     Indication: Amyloidosis
     Dosage: 61 MG, ONE CAPSULE A DAY
     Route: 048
     Dates: start: 2022, end: 202504
  2. ELIQUIS [Concomitant]
     Active Substance: APIXABAN
     Indication: Blood disorder
     Dosage: 5 MG, 2X/DAY
     Dates: start: 2022
  3. REPATHA [Concomitant]
     Active Substance: EVOLOCUMAB
     Indication: Cardiac disorder
     Dates: start: 2023
  4. PREGABALIN [Concomitant]
     Active Substance: PREGABALIN
     Indication: Neuropathy peripheral
     Dosage: 50 MG, 1X/DAY
     Dates: start: 2023
  5. DIHYDROCODEINE PHOSPHATE [Concomitant]
     Active Substance: DIHYDROCODEINE PHOSPHATE
     Indication: Blood pressure measurement
  6. ACETYLENE [Concomitant]
     Active Substance: ACETYLENE
     Indication: Blood pressure measurement

REACTIONS (5)
  - Atrial fibrillation [Unknown]
  - Tendon rupture [Not Recovered/Not Resolved]
  - Rhinorrhoea [Recovered/Resolved]
  - Bladder neoplasm [Unknown]
  - Arthropathy [Unknown]

NARRATIVE: CASE EVENT DATE: 20220101
